FAERS Safety Report 6054533-5 (Version None)
Quarter: 2009Q1

REPORT INFORMATION
  Report Type: 
  Country: None (occurrence: None)
  Receive Date: 20090127
  Receipt Date: 20090120
  Transmission Date: 20090719
  Serious: Yes (Other)
  Sender: FDA-Public Use
  Company Number: PHEH2009US00468

PATIENT
  Age: 82 Year
  Sex: Female

DRUGS (6)
  1. DIOVAN [Suspect]
     Indication: HYPERTENSION
     Dosage: 320 MG, UNK
     Dates: start: 20081211
  2. DIOVAN [Suspect]
     Dosage: 160 MG, QD
     Route: 048
  3. ATIVAN [Concomitant]
     Dosage: 0.25 MG, UNK
     Route: 048
  4. PRILOSEC [Concomitant]
     Dosage: 20 UNK, UNK
     Route: 048
  5. TEMAZEPAM [Concomitant]
     Route: 048
  6. LEXAPRO [Concomitant]
     Route: 048

REACTIONS (4)
  - ANXIETY [None]
  - DYSPNOEA [None]
  - HEART RATE IRREGULAR [None]
  - PRESYNCOPE [None]
